FAERS Safety Report 5626282-6 (Version None)
Quarter: 2008Q1

REPORT INFORMATION
  Report Type: 
  Country: None (occurrence: None)
  Receive Date: 20080214
  Receipt Date: 20080207
  Transmission Date: 20080703
  Serious: Yes (Hospitalization)
  Sender: FDA-Public Use
  Company Number: HQWYE267321SEP07

PATIENT
  Sex: Male
  Weight: 89 kg

DRUGS (6)
  1. TEMSIROLIMUS [Suspect]
     Indication: LYMPHOMA
     Route: 042
     Dates: start: 20070705, end: 20070913
  2. TEMSIROLIMUS [Suspect]
     Route: 042
     Dates: start: 20071018
  3. GRANISETRON [Concomitant]
     Indication: NAUSEA
     Route: 048
     Dates: start: 20070906, end: 20070927
  4. CORSODYL [Concomitant]
     Indication: STOMATITIS
     Route: 048
     Dates: start: 20070712, end: 20070928
  5. SUCRALFATE [Concomitant]
     Indication: PROPHYLAXIS
     Route: 048
     Dates: start: 20070712, end: 20070928
  6. CETIRIZINE HCL [Concomitant]
     Indication: PRURITUS
     Route: 048
     Dates: start: 20070830, end: 20070927

REACTIONS (6)
  - CULTURE STOOL POSITIVE [None]
  - ENTEROCOCCAL INFECTION [None]
  - ESCHERICHIA INFECTION [None]
  - LETHARGY [None]
  - SPUTUM CULTURE POSITIVE [None]
  - UPPER RESPIRATORY TRACT INFECTION [None]
